FAERS Safety Report 9271933 (Version 1)
Quarter: 2013Q2

REPORT INFORMATION
  Report Type: Spontaneous
  Country: US (occurrence: US)
  Receive Date: 20130506
  Receipt Date: 20130506
  Transmission Date: 20140414
  Serious: No
  Sender: FDA-Public Use
  Company Number: US-TARO-2013P1003187

PATIENT
  Age: 53 Year
  Sex: Female
  Weight: 78.02 kg

DRUGS (14)
  1. ETODOLAC [Suspect]
     Indication: ARTHRITIS
     Route: 048
     Dates: start: 2011, end: 201302
  2. ETODOLAC [Suspect]
     Route: 048
     Dates: start: 2011, end: 201302
  3. ETODOLAC [Suspect]
     Indication: ARTHRITIS
     Route: 048
     Dates: start: 201302, end: 20130306
  4. ETODOLAC [Suspect]
     Route: 048
     Dates: start: 201302, end: 20130306
  5. PLAQUENIL [Concomitant]
  6. VYVANSE [Concomitant]
  7. GLUCOSAMINE [Concomitant]
  8. FISH OIL [Concomitant]
  9. CINNAMON [Concomitant]
  10. BIOTIN [Concomitant]
  11. CALCIUM + VITAMIN D [Concomitant]
  12. GLUTENEASE [Concomitant]
  13. LACTAID [Concomitant]
  14. CHLORZOXAZONE [Concomitant]

REACTIONS (1)
  - Myalgia [Recovering/Resolving]
